FAERS Safety Report 9541899 (Version 1)
Quarter: 2013Q2

REPORT INFORMATION
  Report Type: Spontaneous
  Country: US (occurrence: None)
  Receive Date: 20130524
  Receipt Date: 20130524
  Transmission Date: 20140414
  Serious: No
  Sender: FDA-Public Use
  Company Number: PHEH2013US001403

PATIENT
  Sex: Female
  Weight: 63.5 kg

DRUGS (12)
  1. GILENYA [Suspect]
     Indication: MULTIPLE SCLEROSIS
     Route: 048
     Dates: start: 201012
  2. BENADRYL /00647601/ (CAMPHOR, DIPHENHYDRAMINE HYDROCHLORIDE, ZINC OXIDE) [Concomitant]
  3. VITAMIN B CO ALMUS (VITAMIN B COMPLEX) [Concomitant]
  4. INTROVALE (ETHINYLESTRADIOL, LEVONORGESTREL) [Concomitant]
  5. CLARITIN (LORATADINE) [Concomitant]
  6. ACICAL/CALCIUM CARBONATE (CALCIUM CARBONATE) [Concomitant]
  7. VESICARE (SOLIFENACIN SUCCINATE) [Concomitant]
  8. VITAMIN B 12 (VITAMIN B NOS) [Concomitant]
  9. FLAXSEED OIL (LINUM USITATISSIMUM SEED OIL) [Concomitant]
  10. PRENATAL (ASCORBIC ACID, CALCIUM GLUCONATE, CUPRIC CARBONATE, BASIC, CYANOCOBALAMIN, ERGOCALCIFEROL, FERROUS SULFATE, MANGANESE CHLORIDE, NICOTINAMIDE, POTASSIUM IODIDE, PYRIDOXINE HYDROCHLORIDE, RETINOL, RIBOFLAVIN, THIAMINE) [Concomitant]
  11. VITAMIN D3 (COLECALCIFEROL) [Concomitant]
  12. MAGNESIUM (MAGNESIUM) [Concomitant]

REACTIONS (3)
  - Memory impairment [None]
  - Concomitant disease aggravated [None]
  - Urticaria [None]
